FAERS Safety Report 7152587-6 (Version None)
Quarter: 2010Q4

REPORT INFORMATION
  Report Type: 
  Country: None (occurrence: None)
  Receive Date: 20101213
  Receipt Date: 20101202
  Transmission Date: 20110411
  Serious: Yes (Hospitalization)
  Sender: FDA-Public Use
  Company Number: JP-JNJFOC-20100901370

PATIENT
  Sex: Female
  Weight: 65 kg

DRUGS (12)
  1. DOXORUBICIN HCL [Suspect]
     Indication: OVARIAN CANCER RECURRENT
     Dosage: CYCLE 1
     Route: 042
  2. DOXORUBICIN HCL [Suspect]
     Dosage: CYCLE 2
     Route: 042
  3. DOXORUBICIN HCL [Suspect]
     Dosage: CYCLE 3
     Route: 042
  4. DOXORUBICIN HCL [Suspect]
     Dosage: CYCLE 4
     Route: 042
  5. DOXORUBICIN HCL [Suspect]
     Dosage: CYCLE 6
     Route: 042
  6. DOXORUBICIN HCL [Suspect]
     Dosage: CYCLE 5
     Route: 042
  7. LOXONIN [Concomitant]
     Indication: GASTRIC ULCER
     Route: 048
  8. BIO-THREE [Concomitant]
     Indication: DIARRHOEA
     Route: 048
  9. TAKEPRON [Concomitant]
     Indication: GASTRIC ULCER
     Route: 048
  10. KENALOG [Concomitant]
     Indication: STOMATITIS
     Route: 049
  11. HEPARIN [Concomitant]
     Indication: PROPHYLAXIS
     Route: 061
  12. RESTAMIN [Concomitant]
     Indication: PALMAR-PLANTAR ERYTHRODYSAESTHESIA SYNDROME
     Route: 048

REACTIONS (1)
  - C-REACTIVE PROTEIN INCREASED [None]
